FAERS Safety Report 7018507-X (Version None)
Quarter: 2010Q3

REPORT INFORMATION
  Report Type: 
  Country: None (occurrence: None)
  Receive Date: 20100928
  Receipt Date: 20100924
  Transmission Date: 20110219
  Serious: Yes (Life-Threatening)
  Sender: FDA-Public Use
  Company Number: JP-SANOFI-AVENTIS-2010SA046955

PATIENT
  Sex: Female

DRUGS (15)
  1. OXALIPLATIN [Suspect]
     Indication: RECTAL CANCER METASTATIC
     Route: 042
     Dates: start: 20100608, end: 20100608
  2. OXALIPLATIN [Suspect]
     Route: 042
  3. XELODA [Suspect]
     Indication: RECTAL CANCER METASTATIC
     Route: 048
     Dates: start: 20100608
  4. AVASTIN [Suspect]
     Indication: RECTAL CANCER METASTATIC
     Route: 042
     Dates: start: 20100608, end: 20100608
  5. AVASTIN [Suspect]
     Route: 042
     Dates: start: 20100722, end: 20100722
  6. DICLOFENAC SODIUM [Concomitant]
     Dates: start: 20100506, end: 20100723
  7. LOXOPROFEN [Concomitant]
     Dates: start: 20100720, end: 20100723
  8. NORVASC [Concomitant]
     Dates: start: 20081001
  9. GANATON [Concomitant]
     Dates: start: 20081001
  10. MAGLAX [Concomitant]
     Dates: start: 20081001
  11. METHYCOBAL [Concomitant]
     Dates: start: 20100608, end: 20100722
  12. PYDOXAL [Concomitant]
     Dates: start: 20100608, end: 20100722
  13. GOSHAJINKIGAN [Concomitant]
     Dates: start: 20100629, end: 20100722
  14. URSO 250 [Concomitant]
     Dates: start: 20100629, end: 20100722
  15. OXYCONTIN [Concomitant]
     Dates: start: 20100629, end: 20100722

REACTIONS (3)
  - NAUSEA [None]
  - PALMAR-PLANTAR ERYTHRODYSAESTHESIA SYNDROME [None]
  - RECTAL PERFORATION [None]
